FAERS Safety Report 19638590 (Version 1)
Quarter: 2021Q3

REPORT INFORMATION
  Report Type: Spontaneous
  Country: US (occurrence: US)
  Receive Date: 20210730
  Receipt Date: 20210730
  Transmission Date: 20211014
  Serious: No
  Sender: FDA-Public Use
  Company Number: US-ELI_LILLY_AND_COMPANY-US202107012976

PATIENT
  Age: 58 Year
  Sex: Female

DRUGS (2)
  1. TALTZ [Suspect]
     Active Substance: IXEKIZUMAB
     Indication: PSORIASIS
     Dosage: 80 MG, UNKNOWN
     Route: 058
     Dates: start: 202101
  2. TALTZ [Suspect]
     Active Substance: IXEKIZUMAB
     Indication: PSORIASIS
     Dosage: 80 MG, UNKNOWN
     Route: 058
     Dates: start: 202101

REACTIONS (9)
  - Facial pain [Unknown]
  - Tooth abscess [Unknown]
  - Paranasal sinus hypersecretion [Unknown]
  - Ear pain [Unknown]
  - Drug ineffective [Unknown]
  - Trigeminal neuralgia [Unknown]
  - Malaise [Not Recovered/Not Resolved]
  - Eye pain [Unknown]
  - Gastrointestinal pain [Unknown]

NARRATIVE: CASE EVENT DATE: 202101
